FAERS Safety Report 14487768 (Version 1)
Quarter: 2018Q1

REPORT INFORMATION
  Report Type: Spontaneous
  Country: US (occurrence: US)
  Receive Date: 20180205
  Receipt Date: 20180205
  Transmission Date: 20180509
  Serious: Yes (Other)
  Sender: FDA-Public Use
  Company Number: US-ELI_LILLY_AND_COMPANY-US201801011240

PATIENT
  Sex: Female

DRUGS (3)
  1. BASAGLAR [Suspect]
     Active Substance: INSULIN GLARGINE
     Dosage: 46 IU, EVERY THREE DAYS
     Route: 065
  2. BASAGLAR [Suspect]
     Active Substance: INSULIN GLARGINE
     Indication: PRODUCT USED FOR UNKNOWN INDICATION
     Dosage: 42 IU, DAILY
     Route: 065
  3. BASAGLAR [Suspect]
     Active Substance: INSULIN GLARGINE
     Dosage: 46 IU, QOD
     Route: 065

REACTIONS (6)
  - Tendon disorder [Unknown]
  - Glycosylated haemoglobin increased [Unknown]
  - Accidental exposure to product [Unknown]
  - Foot fracture [Unknown]
  - Blood glucose fluctuation [Unknown]
  - Underdose [Unknown]
